FAERS Safety Report 16982026 (Version 2)
Quarter: 2020Q1

REPORT INFORMATION
  Report Type: Spontaneous
  Country: IN (occurrence: IN)
  Receive Date: 20191101
  Receipt Date: 20200121
  Transmission Date: 20200409
  Serious: Yes (Disabling, Other)
  Sender: FDA-Public Use
  Company Number: IN-AMGEN-INDSP2019178502

PATIENT
  Age: 64 Year
  Sex: Female

DRUGS (2)
  1. PROLIA [Suspect]
     Active Substance: DENOSUMAB
     Indication: OSTEOPOROSIS
     Dosage: 60 MILLIGRAM, Q6MO
     Route: 058
     Dates: start: 201808
  2. TERIPARATIDE [Concomitant]
     Active Substance: TERIPARATIDE
     Dosage: UNK

REACTIONS (1)
  - Tuberculosis [Unknown]
